FAERS Safety Report 25919829 (Version 1)
Quarter: 2025Q4

REPORT INFORMATION
  Report Type: Report from Study
  Country: EU (occurrence: EU)
  Receive Date: 20251014
  Receipt Date: 20251014
  Transmission Date: 20260117
  Serious: Yes (Hospitalization)
  Sender: AMGEN
  Company Number: EU-BEH-2025203567

PATIENT
  Age: 71 Year
  Sex: Male
  Weight: 88 kg

DRUGS (7)
  1. AVACOPAN [Suspect]
     Active Substance: AVACOPAN
     Indication: Product used for unknown indication
     Dosage: UNK
     Route: 065
  2. RITUXIMAB [Suspect]
     Active Substance: RITUXIMAB
     Indication: Anti-neutrophil cytoplasmic antibody positive vasculitis
     Dosage: 739 MG, TOT
     Route: 040
     Dates: start: 20250222, end: 20250222
  3. RITUXIMAB [Suspect]
     Active Substance: RITUXIMAB
     Dosage: 740 MG, TOT
     Route: 040
     Dates: start: 20250301, end: 20250301
  4. RITUXIMAB [Suspect]
     Active Substance: RITUXIMAB
     Dosage: 740 MG, TOT
     Route: 040
     Dates: start: 20250308, end: 20250308
  5. RITUXIMAB [Suspect]
     Active Substance: RITUXIMAB
     Dosage: 740 MG, TOT
     Route: 040
     Dates: start: 20250317, end: 20250317
  6. METHYLPREDNISOLONE [Concomitant]
     Active Substance: METHYLPREDNISOLONE
     Indication: Anti-neutrophil cytoplasmic antibody positive vasculitis
     Dosage: 250 MILLIGRAM, QD
     Route: 040
     Dates: start: 20250130, end: 20250201
  7. PREDNISOLONE [Concomitant]
     Active Substance: PREDNISOLONE
     Indication: Anti-neutrophil cytoplasmic antibody positive vasculitis
     Dosage: 75 MG, OD
     Route: 040
     Dates: start: 20250202

REACTIONS (2)
  - Cholecystitis acute [Recovering/Resolving]
  - Urinary tract infection [Recovered/Resolved]

NARRATIVE: CASE EVENT DATE: 20250314
